FAERS Safety Report 8124090-8 (Version None)
Quarter: 2012Q1

REPORT INFORMATION
  Report Type: 
  Country: None (occurrence: None)
  Receive Date: 20120209
  Receipt Date: 20120206
  Transmission Date: 20120608
  Serious: No
  Sender: FDA-Public Use
  Company Number: US-PFIZER INC-2012033324

PATIENT
  Sex: Female

DRUGS (3)
  1. IBUPROFEN (ADVIL) [Suspect]
     Indication: ARTHRITIS
  2. IBUPROFEN (ADVIL) [Suspect]
     Indication: INTERVERTEBRAL DISC DEGENERATION
     Dosage: UNK
  3. ASPIRIN [Suspect]
     Dosage: UNK, DAILY

REACTIONS (1)
  - CONTUSION [None]
